FAERS Safety Report 12405429 (Version 2)
Quarter: 2016Q3

REPORT INFORMATION
  Report Type: Report from Study
  Country: US (occurrence: US)
  Receive Date: 20160525
  Receipt Date: 20160906
  Transmission Date: 20161109
  Serious: Yes (Other)
  Sender: FDA-Public Use
  Company Number: US-ABBVIE-16P-163-1633035-00

PATIENT
  Age: 37 Year
  Sex: Female

DRUGS (2)
  1. LUPRON DEPOT [Suspect]
     Active Substance: LEUPROLIDE ACETATE
     Route: 050
     Dates: start: 20160629, end: 20160901
  2. LUPRON DEPOT [Suspect]
     Active Substance: LEUPROLIDE ACETATE
     Indication: ENDOMETRIOSIS
     Route: 050
     Dates: start: 1996

REACTIONS (17)
  - Hot flush [Recovered/Resolved]
  - Pelvic pain [Not Recovered/Not Resolved]
  - Exposure during pregnancy [Unknown]
  - Menorrhagia [Not Recovered/Not Resolved]
  - Muscle spasms [Unknown]
  - Gastric ulcer [Not Recovered/Not Resolved]
  - Hot flush [Not Recovered/Not Resolved]
  - Caesarean section [Recovered/Resolved]
  - Weight increased [Not Recovered/Not Resolved]
  - Ovarian cyst [Not Recovered/Not Resolved]
  - Gastrooesophageal reflux disease [Not Recovered/Not Resolved]
  - Acne [Not Recovered/Not Resolved]
  - Mood swings [Not Recovered/Not Resolved]
  - Hypersensitivity [Not Recovered/Not Resolved]
  - Female sterilisation [Recovered/Resolved]
  - Migraine [Not Recovered/Not Resolved]
  - Dyspareunia [Not Recovered/Not Resolved]

NARRATIVE: CASE EVENT DATE: 1996
